FAERS Safety Report 5397569-X (Version None)
Quarter: 2007Q3

REPORT INFORMATION
  Report Type: 
  Country: None (occurrence: None)
  Receive Date: 20070726
  Receipt Date: 20070717
  Transmission Date: 20080115
  Serious: Yes (Life-Threatening)
  Sender: FDA-Public Use
  Company Number: FR-ROCHE-501013

PATIENT
  Age: 68 Year
  Sex: Female
  Weight: 61 kg

DRUGS (16)
  1. ROCEPHIN [Suspect]
     Route: 030
     Dates: start: 20070505, end: 20070509
  2. NOVATREX [Suspect]
     Indication: DRUG USE FOR UNKNOWN INDICATION
     Dosage: REPORTED AS NOVATREX 2.5 MG.
     Route: 048
     Dates: end: 20070509
  3. KETEK [Suspect]
     Route: 048
     Dates: start: 20070419, end: 20070424
  4. TAVANIC [Suspect]
     Route: 048
     Dates: start: 20070505, end: 20070509
  5. BREXIN [Suspect]
     Indication: DRUG USE FOR UNKNOWN INDICATION
     Route: 048
  6. BREXIN [Suspect]
     Route: 048
     Dates: start: 20070403, end: 20070509
  7. AUGMENTIN '125' [Suspect]
     Route: 048
     Dates: start: 20070430, end: 20070506
  8. TAREG [Concomitant]
     Dosage: STRENGTH: 160. LONG TERM TREATMENT.
  9. SYMBICORT [Concomitant]
     Dosage: LONG TERM TREATMENT.
  10. BRONCHODUAL [Concomitant]
     Dosage: LONG TERM TREATMENT.
  11. ALPRAZOLAM [Concomitant]
     Dosage: LONG TERM TREATMENT.
  12. EFFEXOR [Concomitant]
     Dosage: LONG TERM TREATMENT.
  13. DI ANTALVIC [Concomitant]
     Dosage: LONG TERM TREATMENT.
  14. NEURONTIN [Concomitant]
     Dosage: LONG TERM TREATMENT.
  15. OGAST [Concomitant]
     Dosage: LONG-TERM TREATMENT.
  16. PULMICORT [Concomitant]
     Dosage: LONG-TERM TREATMENT.

REACTIONS (2)
  - PANCYTOPENIA [None]
  - RENAL FAILURE [None]
